FAERS Safety Report 9301642 (Version 1)
Quarter: 2012Q4

REPORT INFORMATION
  Report Type: Spontaneous
  Country: GB (occurrence: None)
  Receive Date: 20121109
  Receipt Date: 20121109
  Transmission Date: 20130627
  Serious: Yes (Death)
  Sender: FDA-Public Use
  Company Number: 2011S1000665

PATIENT
  Age: 74 Year
  Sex: Male

DRUGS (6)
  1. CUBICIN (DAPTOMYCIN) [Suspect]
     Indication: ARTHRITIS BACTERIAL
     Route: 042
     Dates: start: 20110917, end: 20111102
  2. CUBICIN (DAPTOMYCIN) [Suspect]
     Indication: SPONDYLODISCITIS
     Route: 042
     Dates: start: 20110917, end: 20111102
  3. AMOXICILLIN [Concomitant]
  4. CLAVULANATE [Concomitant]
  5. POTASSIUM [Concomitant]
  6. TAZOCIN [Concomitant]

REACTIONS (4)
  - Treatment failure [None]
  - Wheezing [None]
  - Intervertebral discitis [None]
  - Off label use [None]
